FAERS Safety Report 10206375 (Version 1)
Quarter: 2014Q2

REPORT INFORMATION
  Report Type: Spontaneous
  Country: AU (occurrence: None)
  Receive Date: 20140527
  Receipt Date: 20140527
  Transmission Date: 20141212
  Serious: Yes (Hospitalization)
  Sender: FDA-Public Use
  Company Number: None

PATIENT
  Age: 2 Year
  Sex: Female
  Weight: 13.15 kg

DRUGS (5)
  1. DEXAMETHASONE [Suspect]
  2. CYTARABINE [Suspect]
  3. METHOTREXATE [Suspect]
  4. PEG-L-ASPARAGINASE [Suspect]
  5. VINCRISTINE SULFATE [Suspect]

REACTIONS (19)
  - Febrile neutropenia [None]
  - Lethargy [None]
  - Asthenia [None]
  - Mobility decreased [None]
  - Contusion [None]
  - Stenotrophomonas test positive [None]
  - Pseudomonas test positive [None]
  - Vomiting [None]
  - Pallor [None]
  - Anal haemorrhage [None]
  - Rectal haemorrhage [None]
  - Thrombosis [None]
  - Shock haemorrhagic [None]
  - Mucosal inflammation [None]
  - Cardiac arrest [None]
  - Proctitis [None]
  - Aneurysm [None]
  - Fungal infection [None]
  - Skin lesion [None]
